FAERS Safety Report 7518343-1 (Version None)
Quarter: 2011Q2

REPORT INFORMATION
  Report Type: 
  Country: None (occurrence: None)
  Receive Date: 20110601
  Receipt Date: 20110601
  Transmission Date: 20111010
  Serious: Yes (Other)
  Sender: FDA-Public Use
  Company Number: None

PATIENT
  Sex: Female
  Weight: 72.5755 kg

DRUGS (2)
  1. ULESFIA [Suspect]
     Indication: LICE INFESTATION
     Dosage: 1.5 BOTTLES 1X TOP
     Route: 061
     Dates: start: 20110514, end: 20110514
  2. ULESFIA [Suspect]
     Indication: LICE INFESTATION
     Dosage: 1.5 BOTTLES 1X TOP
     Route: 061
     Dates: start: 20110525, end: 20110525

REACTIONS (2)
  - LOCAL SWELLING [None]
  - ERYTHEMA [None]
